FAERS Safety Report 6231497-2 (Version None)
Quarter: 2009Q2

REPORT INFORMATION
  Report Type: 
  Country: None (occurrence: None)
  Receive Date: 20090616
  Receipt Date: 20090608
  Transmission Date: 20091009
  Serious: Yes (Hospitalization)
  Sender: FDA-Public Use
  Company Number: A0791451A

PATIENT
  Age: 65 Year
  Sex: Male

DRUGS (1)
  1. AVANDIA [Suspect]
     Dosage: 8MG PER DAY
     Route: 048
     Dates: start: 20000208, end: 20070520

REACTIONS (6)
  - ANGINA UNSTABLE [None]
  - CORONARY ARTERY DISEASE [None]
  - DYSPHAGIA [None]
  - HAEMORRHAGE INTRACRANIAL [None]
  - HYPERLIPIDAEMIA [None]
  - ISCHAEMIC STROKE [None]
